FAERS Safety Report 21723289 (Version 1)
Quarter: 2022Q4

REPORT INFORMATION
  Report Type: Spontaneous
  Country: US (occurrence: US)
  Receive Date: 20221213
  Receipt Date: 20221213
  Transmission Date: 20230113
  Serious: Yes (Death, Hospitalization)
  Sender: FDA-Public Use
  Company Number: US-BIOMARINAP-US-2022-147362

PATIENT

DRUGS (1)
  1. NAGLAZYME [Suspect]
     Active Substance: GALSULFASE
     Indication: Mucopolysaccharidosis VI
     Dosage: 45 MILLIGRAM, QW
     Route: 042
     Dates: start: 20070607

REACTIONS (2)
  - Cardiac failure [Fatal]
  - Respiratory distress [Unknown]

NARRATIVE: CASE EVENT DATE: 20221122
